FAERS Safety Report 9536246 (Version 6)
Quarter: 2013Q4

REPORT INFORMATION
  Report Type: Spontaneous
  Country: US (occurrence: US)
  Receive Date: 20130919
  Receipt Date: 20131031
  Transmission Date: 20140711
  Serious: Yes (Hospitalization)
  Sender: FDA-Public Use
  Company Number: US-JNJFOC-20130906473

PATIENT
  Age: 64 Year
  Sex: Male
  Weight: 65.77 kg

DRUGS (2)
  1. XARELTO [Suspect]
     Indication: CEREBROVASCULAR ACCIDENT PROPHYLAXIS
     Route: 048
     Dates: start: 20130206
  2. XARELTO [Suspect]
     Indication: ATRIAL FIBRILLATION
     Route: 048
     Dates: start: 20130206

REACTIONS (5)
  - Haemorrhoidal haemorrhage [Recovering/Resolving]
  - Haemoglobin decreased [Recovering/Resolving]
  - Asthenia [Unknown]
  - Fatigue [Recovering/Resolving]
  - Exercise tolerance decreased [Unknown]
